FAERS Safety Report 17184897 (Version 1)
Quarter: 2019Q4

REPORT INFORMATION
  Report Type: Spontaneous
  Country: GR (occurrence: GR)
  Receive Date: 20191220
  Receipt Date: 20191220
  Transmission Date: 20200122
  Serious: Yes (Other)
  Sender: FDA-Public Use
  Company Number: GR-PFIZER INC-2019540504

PATIENT
  Sex: Male

DRUGS (4)
  1. EMTRICITABINE/TENOFOVIR [Concomitant]
     Active Substance: EMTRICITABINE\TENOFOVIR
  2. HYDROCORTISONE SODIUM SUCCINATE [Suspect]
     Active Substance: HYDROCORTISONE SODIUM SUCCINATE
     Dosage: 20 MG - 10 MG
  3. BUDESONIDE. [Concomitant]
     Active Substance: BUDESONIDE
  4. RALTEGRAVIR. [Concomitant]
     Active Substance: RALTEGRAVIR

REACTIONS (2)
  - Hypoglycaemia [Unknown]
  - Blood pressure systolic decreased [Unknown]
